FAERS Safety Report 9059992 (Version 1)
Quarter: 2013Q1

REPORT INFORMATION
  Report Type: Spontaneous
  Country: US (occurrence: None)
  Receive Date: 20130206
  Receipt Date: 20130206
  Transmission Date: 20140127
  Serious: Yes (Other)
  Sender: FDA-Public Use
  Company Number: None

PATIENT
  Sex: Male

DRUGS (1)
  1. ZELBORAF [Suspect]
     Dosage: 960 MG BID PO
     Route: 048
     Dates: start: 20120222, end: 201301

REACTIONS (1)
  - Visual acuity reduced [None]
